FAERS Safety Report 6970415-6 (Version None)
Quarter: 2010Q3

REPORT INFORMATION
  Report Type: 
  Country: None (occurrence: None)
  Receive Date: 20100908
  Receipt Date: 20100901
  Transmission Date: 20110219
  Serious: Yes (Death)
  Sender: FDA-Public Use
  Company Number: JP-SANOFI-AVENTIS-2010SA052031

PATIENT

DRUGS (2)
  1. TAXOTERE [Suspect]
     Indication: OESOPHAGEAL CARCINOMA RECURRENT
     Route: 042
  2. NEDAPLATIN [Concomitant]
     Indication: OESOPHAGEAL CARCINOMA RECURRENT

REACTIONS (1)
  - PNEUMONIA [None]
